FAERS Safety Report 5023021-7 (Version None)
Quarter: 2006Q2

REPORT INFORMATION
  Report Type: 
  Country: None (occurrence: None)
  Receive Date: 20060426
  Receipt Date: 20060224
  Transmission Date: 20061013
  Serious: Yes (Other)
  Sender: FDA-Public Use
  Company Number: 2006029512

PATIENT
  Sex: Female

DRUGS (9)
  1. LYRICA [Suspect]
     Indication: FIBROMYALGIA
  2. SPIRONOLACTONE [Concomitant]
  3. FLEXERIL [Concomitant]
  4. TRAMADOL HCL [Concomitant]
  5. TOPAMAX [Concomitant]
  6. QUININE SULFATE [Concomitant]
  7. SEROQUEL [Concomitant]
  8. PAROXETINE [Concomitant]
  9. ADVIL [Concomitant]

REACTIONS (7)
  - FATIGUE [None]
  - MUSCULAR WEAKNESS [None]
  - PAIN [None]
  - SPEECH DISORDER [None]
  - SWELLING [None]
  - VISION BLURRED [None]
  - WEIGHT INCREASED [None]
